FAERS Safety Report 7964409-1 (Version None)
Quarter: 2011Q4

REPORT INFORMATION
  Report Type: 
  Country: None (occurrence: None)
  Receive Date: 20111208
  Receipt Date: 20111130
  Transmission Date: 20120403
  Serious: Yes (Other)
  Sender: FDA-Public Use
  Company Number: US-SANOFI-AVENTIS-2011SA078706

PATIENT
  Sex: Male
  Weight: 90 kg

DRUGS (7)
  1. PLAVIX [Suspect]
     Route: 048
     Dates: start: 20080101, end: 20111129
  2. PLAVIX [Suspect]
     Indication: ANTIPHOSPHOLIPID SYNDROME
     Route: 048
     Dates: start: 20000101, end: 20040101
  3. PLAVIX [Suspect]
     Route: 048
     Dates: start: 20000101, end: 20040101
  4. COUMADIN [Suspect]
     Dates: start: 20000101
  5. ARIXTRA [Concomitant]
     Dates: start: 20111129
  6. COUMADIN [Suspect]
     Indication: ANTIPHOSPHOLIPID SYNDROME
     Dates: start: 20000101
  7. PLAVIX [Suspect]
     Route: 048
     Dates: start: 20080101, end: 20111129

REACTIONS (4)
  - HIP FRACTURE [None]
  - HYPERSENSITIVITY [None]
  - ANGINA PECTORIS [None]
  - SURGERY [None]
